FAERS Safety Report 6713252-X (Version None)
Quarter: 2010Q2

REPORT INFORMATION
  Report Type: 
  Country: None (occurrence: None)
  Receive Date: 20100506
  Receipt Date: 20100503
  Transmission Date: 20101027
  Serious: Yes (Life-Threatening, Hospitalization, Other)
  Sender: FDA-Public Use
  Company Number: PHHY2010ES28254

PATIENT
  Age: 43 Year
  Sex: Male

DRUGS (2)
  1. TEGRETOL [Suspect]
     Indication: EPILEPSY
     Dosage: 1.2 G, UNK
     Route: 048
  2. WARFARIN [Interacting]
     Indication: VENOUS THROMBOSIS
     Dosage: UNK
     Dates: start: 20030101, end: 20081111

REACTIONS (4)
  - DRUG INTERACTION [None]
  - HERNIA [None]
  - OESOPHAGITIS [None]
  - UPPER GASTROINTESTINAL HAEMORRHAGE [None]
